FAERS Safety Report 10196421 (Version 2)
Quarter: 2014Q3

REPORT INFORMATION
  Report Type: Spontaneous
  Country: CA (occurrence: CA)
  Receive Date: 20140527
  Receipt Date: 20140911
  Transmission Date: 20150326
  Serious: Yes (Other)
  Sender: FDA-Public Use
  Company Number: CA-JNJFOC-20140510696

PATIENT
  Sex: Male

DRUGS (4)
  1. COCAINE [Concomitant]
     Active Substance: COCAINE
     Route: 065
  2. INVEGA SUSTENNA [Suspect]
     Active Substance: PALIPERIDONE PALMITATE
     Indication: PRODUCT USED FOR UNKNOWN INDICATION
     Route: 030
  3. ALCOHOL. [Concomitant]
     Active Substance: ALCOHOL
     Route: 065
  4. AMPHETAMINE [Concomitant]
     Active Substance: AMPHETAMINE
     Route: 065

REACTIONS (1)
  - Delirium [Not Recovered/Not Resolved]
